FAERS Safety Report 7994568-6 (Version None)
Quarter: 2011Q4

REPORT INFORMATION
  Report Type: 
  Country: None (occurrence: None)
  Receive Date: 20111220
  Receipt Date: 20111212
  Transmission Date: 20120403
  Serious: Yes (Death, Other)
  Sender: FDA-Public Use
  Company Number: JP-PFIZER INC-2011262317

PATIENT
  Age: 69 Year
  Sex: Female
  Weight: 51 kg

DRUGS (6)
  1. ZOSYN [Suspect]
     Indication: PYELONEPHRITIS ACUTE
     Dosage: 13.5 G, UNK
     Route: 041
     Dates: start: 20110203, end: 20110226
  2. RADICUT [Concomitant]
     Indication: SUBARACHNOID HAEMORRHAGE
     Dosage: 60 MG, A DAY
     Route: 041
  3. FAMOTIDINE [Suspect]
     Indication: PROPHYLAXIS AGAINST GASTROINTESTINAL ULCER
     Dosage: 40 MG, UNK
     Route: 048
  4. NICARDIPINE HCL [Concomitant]
     Indication: SUBARACHNOID HAEMORRHAGE
     Dosage: 50 MG, A DAY
     Route: 041
  5. FASUDIL HYDROCHLORIDE [Concomitant]
     Indication: SUBARACHNOID HAEMORRHAGE
     Dosage: 90 MG, A DAY
  6. TEGRETOL [Concomitant]
     Indication: CONVULSION PROPHYLAXIS
     Dosage: 400 MG, A DAY
     Route: 048

REACTIONS (2)
  - CLOSTRIDIAL INFECTION [None]
  - SHOCK [None]
